FAERS Safety Report 7496495-X (Version None)
Quarter: 2011Q2

REPORT INFORMATION
  Report Type: 
  Country: None (occurrence: None)
  Receive Date: 20110520
  Receipt Date: 20110520
  Transmission Date: 20111010
  Serious: Yes (Death)
  Sender: FDA-Public Use
  Company Number: None

PATIENT
  Age: 53 Year
  Sex: Male

DRUGS (1)
  1. CHLORPROMAZINE [Suspect]
     Indication: SCHIZOPHRENIA, PARANOID TYPE
     Dates: start: 20100813, end: 20110212

REACTIONS (2)
  - NEUROLEPTIC MALIGNANT SYNDROME [None]
  - NO THERAPEUTIC RESPONSE [None]
